FAERS Safety Report 15206898 (Version 2)
Quarter: 2019Q1

REPORT INFORMATION
  Report Type: Spontaneous
  Country: US (occurrence: US)
  Receive Date: 20180727
  Receipt Date: 20190121
  Transmission Date: 20190417
  Serious: Yes (Other)
  Sender: FDA-Public Use
  Company Number: US-LUPIN PHARMACEUTICALS INC.-2018-05277

PATIENT
  Age: 30 Year
  Sex: Female
  Weight: 123.81 kg

DRUGS (2)
  1. SYNTHROID [Concomitant]
     Active Substance: LEVOTHYROXINE SODIUM
     Indication: PRODUCT USED FOR UNKNOWN INDICATION
     Dosage: UNK
     Route: 065
  2. NORETHINDRONE TABLETS USP 0.35 MG [Suspect]
     Active Substance: NORETHINDRONE
     Indication: ORAL CONTRACEPTION
     Dosage: 0.35 MG, QD
     Route: 048
     Dates: start: 20180601, end: 20180628

REACTIONS (6)
  - Pregnancy on oral contraceptive [Unknown]
  - Amenorrhoea [Unknown]
  - Staphylococcal infection [Unknown]
  - Post abortion infection [Unknown]
  - Malaise [Unknown]
  - Vaginal haemorrhage [Unknown]

NARRATIVE: CASE EVENT DATE: 201807
